FAERS Safety Report 5340394-6 (Version None)
Quarter: 2007Q2

REPORT INFORMATION
  Report Type: 
  Country: None (occurrence: None)
  Receive Date: 20070531
  Receipt Date: 20070516
  Transmission Date: 20071010
  Serious: Yes (Other)
  Sender: FDA-Public Use
  Company Number: JP-SANOFI-SYNTHELABO-A01200705641

PATIENT
  Age: 0 Day
  Sex: Male
  Weight: 2.558 kg

DRUGS (2)
  1. PREDNISOLONE [Concomitant]
     Indication: DRUG USE FOR UNKNOWN INDICATION
     Dosage: 10 MG
     Route: 064
  2. MYTELASE [Suspect]
     Indication: MYASTHENIA GRAVIS
     Dosage: 20 MG
     Route: 064

REACTIONS (5)
  - ACIDOSIS [None]
  - DRUG EXPOSURE DURING PREGNANCY [None]
  - HYPERTONIA [None]
  - HYPOGLYCAEMIA [None]
  - MIOSIS [None]
